FAERS Safety Report 9402010 (Version 2)
Quarter: 2013Q3

REPORT INFORMATION
  Report Type: Spontaneous
  Country: JP (occurrence: JP)
  Receive Date: 20130716
  Receipt Date: 20130909
  Transmission Date: 20140515
  Serious: Yes (Other)
  Sender: FDA-Public Use
  Company Number: PHHY2013JP074513

PATIENT
  Age: 60 Year
  Sex: Female

DRUGS (4)
  1. FEMARA [Suspect]
     Indication: BREAST CANCER STAGE II
     Dosage: UNK UKN, UNK
     Route: 048
     Dates: start: 200904
  2. FEMARA [Suspect]
     Dosage: UNK UKN, UNK
     Route: 048
     Dates: start: 200910
  3. TOREMIFENE CITRATE [Suspect]
     Dosage: UNK UKN, UNK
     Route: 048
     Dates: end: 200908
  4. RADIATION THERAPY [Concomitant]
     Dosage: 50 GY
     Dates: start: 200905

REACTIONS (1)
  - Organising pneumonia [Not Recovered/Not Resolved]
